FAERS Safety Report 5088661-8 (Version None)
Quarter: 2006Q3

REPORT INFORMATION
  Report Type: 
  Country: None (occurrence: None)
  Receive Date: 20060825
  Receipt Date: 20060113
  Transmission Date: 20061208
  Serious: No
  Sender: FDA-Public Use
  Company Number: US-BRISTOL-MYERS SQUIBB COMPANY-13247705

PATIENT
  Sex: Male

DRUGS (3)
  1. MUCOMYST [Suspect]
     Route: 055
  2. ALBUTEROL [Suspect]
     Route: 055
  3. PULMOZYME [Concomitant]
     Route: 055

REACTIONS (1)
  - DRUG INEFFECTIVE [None]
